FAERS Safety Report 5759133-X (Version None)
Quarter: 2008Q2

REPORT INFORMATION
  Report Type: 
  Country: None (occurrence: None)
  Receive Date: 20080604
  Receipt Date: 20080522
  Transmission Date: 20081010
  Serious: No
  Sender: FDA-Public Use
  Company Number: US-BOEHRINGER INGELHEIM GMBH, GERMANY-2008-BP-07025BP

PATIENT
  Age: 7 Decade
  Sex: Male

DRUGS (5)
  1. ATROVENT HFA [Suspect]
     Dates: end: 20080401
  2. SPIRIVA [Suspect]
     Route: 055
  3. ALBUTEROL [Concomitant]
  4. AVELON [Concomitant]
     Dosage: 400 QAM
  5. ASPIRIN [Concomitant]

REACTIONS (1)
  - DYSKINESIA [None]
